FAERS Safety Report 5043913-2 (Version None)
Quarter: 2006Q3

REPORT INFORMATION
  Report Type: 
  Country: None (occurrence: None)
  Receive Date: 20060706
  Receipt Date: 20060613
  Transmission Date: 20061208
  Serious: Yes (Other)
  Sender: FDA-Public Use
  Company Number: PHBS2006JP09087

PATIENT
  Age: 11 Year
  Sex: Female

DRUGS (4)
  1. KLARICID [Concomitant]
  2. TOFRANIL [Suspect]
     Dosage: 25 MG/D
     Route: 048
     Dates: start: 20050701
  3. TOFRANIL [Suspect]
     Dosage: 30 MG, QHS
     Route: 048
     Dates: start: 20060508
  4. MACROLIDES [Suspect]
     Route: 065

REACTIONS (6)
  - ABDOMINAL PAIN [None]
  - BRONCHITIS [None]
  - COUGH [None]
  - DRUG INTERACTION [None]
  - NAUSEA [None]
  - VOMITING [None]
